FAERS Safety Report 9379251 (Version 2)
Quarter: 2013Q3

REPORT INFORMATION
  Report Type: Spontaneous
  Country: US (occurrence: US)
  Receive Date: 20130702
  Receipt Date: 20130821
  Transmission Date: 20140515
  Serious: Yes (Hospitalization)
  Sender: FDA-Public Use
  Company Number: US-JNJFOC-20130613896

PATIENT
  Sex: Male
  Weight: 92.53 kg

DRUGS (4)
  1. INVEGA SUSTENNA [Suspect]
     Indication: SCHIZOPHRENIA, PARANOID TYPE
     Route: 030
  2. INVEGA SUSTENNA [Suspect]
     Indication: SCHIZOPHRENIA, PARANOID TYPE
     Dosage: SECOND INJECTION
     Route: 030
     Dates: start: 20130521
  3. INVEGA SUSTENNA [Suspect]
     Indication: SCHIZOPHRENIA, PARANOID TYPE
     Dosage: FIRST INJECTION
     Route: 030
     Dates: start: 20130515
  4. PROLIXIN DECANOATE [Concomitant]
     Indication: PSYCHOTIC DISORDER
     Route: 065

REACTIONS (5)
  - Constipation [Recovered/Resolved with Sequelae]
  - Delusion [Unknown]
  - Hallucination [Unknown]
  - Inappropriate schedule of drug administration [Unknown]
  - Weight increased [Unknown]
